FAERS Safety Report 9783154 (Version 1)
Quarter: 2013Q4

REPORT INFORMATION
  Report Type: Spontaneous
  Country: CA (occurrence: None)
  Receive Date: 20131223
  Receipt Date: 20131223
  Transmission Date: 20140711
  Serious: No
  Sender: FDA-Public Use
  Company Number: 2013AP010514

PATIENT
  Age: 54 Year
  Sex: Male

DRUGS (3)
  1. DESMOPRESSIN [Suspect]
     Indication: PITUITARY TUMOUR
     Dosage: UNKNOWN; NAS_SPRAY; UNKNOWN
     Route: 045
     Dates: start: 1980
  2. PREDNISONE (PREDNISONE) [Concomitant]
  3. ATORVASTATIN CALCIUM (ATORVASTATIN CALCIUM) [Concomitant]

REACTIONS (2)
  - Drug ineffective [None]
  - Dysuria [None]
